FAERS Safety Report 6816103-8 (Version None)
Quarter: 2010Q3

REPORT INFORMATION
  Report Type: 
  Country: None (occurrence: None)
  Receive Date: 20100705
  Receipt Date: 20100623
  Transmission Date: 20110219
  Serious: Yes (Other)
  Sender: FDA-Public Use
  Company Number: US-RB-012476-10

PATIENT
  Age: 73 Year
  Sex: Female

DRUGS (1)
  1. MUCINEX [Suspect]
     Dosage: BEEN TAKING 2 TABLETS 3 TIMES A DAY FOR OVER A MONTH FOR A CHRONIC SINUS INFECTION
     Route: 048
     Dates: start: 20100101

REACTIONS (4)
  - DIZZINESS [None]
  - DRUG ABUSE [None]
  - INCORRECT DRUG ADMINISTRATION DURATION [None]
  - MUCOSAL DRYNESS [None]
